FAERS Safety Report 5590440-X (Version None)
Quarter: 2008Q1

REPORT INFORMATION
  Report Type: 
  Country: None (occurrence: None)
  Receive Date: 20080114
  Receipt Date: 20080109
  Transmission Date: 20080703
  Serious: Yes (Hospitalization)
  Sender: FDA-Public Use
  Company Number: DE-BOEHRINGER INGELHEIM PHARMACEUTICALS, INC.-2007-DE-01834DE

PATIENT
  Sex: Female

DRUGS (7)
  1. APTIVUS [Suspect]
     Indication: HIV INFECTION
     Dosage: 1000 MG TIPRANAVIR + 200 MG RITONAVIR
     Route: 048
     Dates: start: 20070316
  2. ZIDOVUDINE [Concomitant]
     Indication: HIV INFECTION
     Route: 048
  3. 3TC [Concomitant]
     Indication: HIV INFECTION
     Route: 048
  4. NEVIRAPINE [Concomitant]
     Indication: HIV INFECTION
     Route: 048
     Dates: end: 20070315
  5. TENOFOVIR [Concomitant]
     Indication: HIV INFECTION
     Route: 048
     Dates: start: 20070316
  6. ENFUVIRTIDE [Concomitant]
     Indication: HIV INFECTION
     Route: 058
     Dates: start: 20070316
  7. ZIDOVUDINE [Concomitant]
     Route: 042
     Dates: start: 20070412, end: 20070412

REACTIONS (2)
  - CAESAREAN SECTION [None]
  - MECONIUM IN AMNIOTIC FLUID [None]
